FAERS Safety Report 9356862 (Version 2)
Quarter: 2013Q2

REPORT INFORMATION
  Report Type: Report from Study
  Country: US (occurrence: US)
  Receive Date: 20130620
  Receipt Date: 20130626
  Transmission Date: 20140414
  Serious: Yes (Other)
  Sender: FDA-Public Use
  Company Number: US-PFIZER INC-2013181062

PATIENT
  Age: 75 Year
  Sex: Male

DRUGS (1)
  1. LIPITOR [Suspect]
     Indication: HYPERLIPIDAEMIA
     Dosage: 20 UNK, UNK

REACTIONS (3)
  - Myocardial infarction [Unknown]
  - Drug intolerance [Unknown]
  - Myalgia [Unknown]
